FAERS Safety Report 17773356 (Version 1)
Quarter: 2020Q2

REPORT INFORMATION
  Report Type: Report from Study
  Country: None (occurrence: US)
  Receive Date: 20200513
  Receipt Date: 20200513
  Transmission Date: 20200714
  Serious: Yes (Other)
  Sender: FDA-Public Use
  Company Number: US-ABBVIE-20K-163-3398255-00

PATIENT
  Sex: Male

DRUGS (1)
  1. VENCLEXTA [Suspect]
     Active Substance: VENETOCLAX
     Indication: CHRONIC LYMPHOCYTIC LEUKAEMIA
     Route: 048
     Dates: start: 20160727

REACTIONS (8)
  - Back pain [Unknown]
  - Hot flush [Unknown]
  - Insomnia [Unknown]
  - Lymphadenopathy [Recovering/Resolving]
  - Discomfort [Unknown]
  - Nerve compression [Unknown]
  - Incision site pain [Unknown]
  - Intervertebral disc protrusion [Unknown]
